FAERS Safety Report 6422306-7 (Version None)
Quarter: 2009Q4

REPORT INFORMATION
  Report Type: 
  Country: None (occurrence: None)
  Receive Date: 20091030
  Receipt Date: 20091026
  Transmission Date: 20100525
  Serious: Yes (Other)
  Sender: FDA-Public Use
  Company Number: US-ELI_LILLY_AND_COMPANY-US200910006467

PATIENT
  Sex: Female

DRUGS (13)
  1. HUMALOG [Suspect]
     Indication: TYPE 1 DIABETES MELLITUS
     Dosage: 2 U, OTHER
     Dates: end: 20090701
  2. HUMALOG [Suspect]
     Dosage: 2 U, OTHER
     Dates: start: 20090701
  3. LANTUS [Concomitant]
  4. ACTONEL [Concomitant]
  5. VAGIFEM [Concomitant]
  6. DIOVAN [Concomitant]
  7. FUROSEMIDE [Concomitant]
  8. SYNTHROID [Concomitant]
  9. AMITIZA [Concomitant]
  10. TOPROL-XL [Concomitant]
  11. ACETAZOLAMIDE [Concomitant]
  12. POTASSIUM CHLORIDE [Concomitant]
  13. CADUET [Concomitant]

REACTIONS (8)
  - BLINDNESS [None]
  - BLOOD GLUCOSE INCREASED [None]
  - DRUG DISPENSING ERROR [None]
  - DRUG DOSE OMISSION [None]
  - DRUG INEFFECTIVE [None]
  - EXPIRED DRUG ADMINISTERED [None]
  - MALABSORPTION FROM INJECTION SITE [None]
  - WRONG TECHNIQUE IN DRUG USAGE PROCESS [None]
